FAERS Safety Report 5779583-5 (Version None)
Quarter: 2008Q2

REPORT INFORMATION
  Report Type: 
  Country: None (occurrence: None)
  Receive Date: 20080619
  Receipt Date: 20080311
  Transmission Date: 20081010
  Serious: No
  Sender: FDA-Public Use
  Company Number: US-ASTRAZENECA-2008UW03340

PATIENT
  Age: 58 Year
  Sex: Female

DRUGS (2)
  1. ATACAND HCT [Suspect]
     Indication: HYPERTENSION
     Dosage: 32MG/12.5MG DAILY
     Route: 048
  2. LEXAPRO [Concomitant]

REACTIONS (2)
  - FACE OEDEMA [None]
  - RASH [None]
